FAERS Safety Report 5472477-4 (Version None)
Quarter: 2007Q4

REPORT INFORMATION
  Report Type: 
  Country: None (occurrence: None)
  Receive Date: 20071001
  Receipt Date: 20070920
  Transmission Date: 20080405
  Serious: Yes (Other)
  Sender: FDA-Public Use
  Company Number: GB-BRISTOL-MYERS SQUIBB COMPANY-13922455

PATIENT
  Age: 78 Year
  Sex: Female

DRUGS (4)
  1. CYCLOPHOSPHAMIDE [Suspect]
     Indication: CHRONIC LYMPHOCYTIC LEUKAEMIA STAGE 4
     Dates: start: 20000701
  2. FLUDARA [Suspect]
     Indication: CHRONIC LYMPHOCYTIC LEUKAEMIA STAGE 4
     Dates: start: 20000701
  3. AMITRIPTYLINE HCL [Concomitant]
  4. CO-TRIMOXAZOLE [Concomitant]
     Indication: ANTIFUNGAL PROPHYLAXIS

REACTIONS (5)
  - APLASIA [None]
  - GRANULOCYTES MATURATION ARREST [None]
  - NEUTROPENIA [None]
  - RENAL IMPAIRMENT [None]
  - SEPSIS [None]
